FAERS Safety Report 21335343 (Version 1)
Quarter: 2022Q3

REPORT INFORMATION
  Report Type: Other
  Country: None (occurrence: GB)
  Receive Date: 20220915
  Receipt Date: 20220915
  Transmission Date: 20221027
  Serious: Yes (Other)
  Sender: FDA-Public Use
  Company Number: GB-Ajanta Pharma USA Inc.-2132863

PATIENT
  Age: 50 Year
  Sex: Male

DRUGS (1)
  1. DOXYCYCLINE HYCLATE [Suspect]
     Active Substance: DOXYCYCLINE HYCLATE
     Indication: Acne

REACTIONS (2)
  - Oesophageal stenosis [Unknown]
  - Oesophagitis [Unknown]
